FAERS Safety Report 4511969-9 (Version None)
Quarter: 2004Q4

REPORT INFORMATION
  Report Type: 
  Country: None (occurrence: None)
  Receive Date: 20041123
  Receipt Date: 20041108
  Transmission Date: 20050328
  Serious: No
  Sender: FDA-Public Use
  Company Number: K200301805

PATIENT
  Age: 50 Year
  Sex: Female
  Weight: 75.3 kg

DRUGS (5)
  1. LEVOXYL [Suspect]
     Indication: AUTOIMMUNE THYROIDITIS
     Dosage: 75 MCG, QD, ORAL; 50 MCG, QD, ORAL; 25 MCG, QD, ORAL; 50 MCG, QD, ORAL
     Route: 048
     Dates: end: 20010101
  2. LEVOXYL [Suspect]
     Indication: AUTOIMMUNE THYROIDITIS
     Dosage: 75 MCG, QD, ORAL; 50 MCG, QD, ORAL; 25 MCG, QD, ORAL; 50 MCG, QD, ORAL
     Route: 048
     Dates: start: 20010101, end: 20020101
  3. LEVOXYL [Suspect]
     Indication: AUTOIMMUNE THYROIDITIS
     Dosage: 75 MCG, QD, ORAL; 50 MCG, QD, ORAL; 25 MCG, QD, ORAL; 50 MCG, QD, ORAL
     Route: 048
     Dates: start: 20020101
  4. PREVACID [Concomitant]
  5. PREMARIN [Concomitant]

REACTIONS (17)
  - ALOPECIA [None]
  - ASTHENIA [None]
  - CHOLECYSTITIS [None]
  - CONDITION AGGRAVATED [None]
  - DEPRESSION [None]
  - DIFFICULTY IN WALKING [None]
  - DISEASE RECURRENCE [None]
  - DYSPHAGIA [None]
  - EJECTION FRACTION ABNORMAL [None]
  - FAECALOMA [None]
  - FEELING ABNORMAL [None]
  - GALLBLADDER DISORDER [None]
  - GASTROOESOPHAGEAL REFLUX DISEASE [None]
  - GOITRE [None]
  - HEART RATE DECREASED [None]
  - MEMORY IMPAIRMENT [None]
  - NODULE [None]
